FAERS Safety Report 9595864 (Version 4)
Quarter: 2014Q2

REPORT INFORMATION
  Report Type: Spontaneous
  Country: GB (occurrence: GB)
  Receive Date: 20131004
  Receipt Date: 20140512
  Transmission Date: 20141212
  Serious: Yes (Disabling)
  Sender: FDA-Public Use
  Company Number: PHFR2013GB004904

PATIENT
  Age: 79 Year
  Sex: Female
  Weight: 39 kg

DRUGS (7)
  1. EXELON PATCH [Suspect]
     Indication: DEMENTIA
     Dosage: 4.6 MG DAILY
     Route: 062
     Dates: start: 20130724
  2. EXELON PATCH [Suspect]
     Dosage: PATCH 4.6MG HAD BEEN HALVED
     Route: 062
  3. ESOMEPRAZOLE [Concomitant]
     Dosage: 20 MG, DAILY
     Route: 048
  4. MIRTAZAPINE [Concomitant]
     Dosage: 15 MG, DAILY
     Route: 048
  5. ALENDRONIC ACID [Concomitant]
     Dosage: 70 MG, DAILY
     Route: 048
  6. RANITIDINE [Concomitant]
     Dosage: 150 MG, DAILY
     Route: 048
  7. ADCAL D3 [Concomitant]
     Dosage: UNK UKN, BID
     Route: 048

REACTIONS (6)
  - Mood swings [Recovering/Resolving]
  - Malaise [Recovering/Resolving]
  - Hallucination [Recovering/Resolving]
  - Aggression [Recovering/Resolving]
  - Somnolence [Unknown]
  - Wrong technique in drug usage process [Unknown]
